FAERS Safety Report 8014489-2 (Version None)
Quarter: 2011Q4

REPORT INFORMATION
  Report Type: 
  Country: None (occurrence: None)
  Receive Date: 20111229
  Receipt Date: 20110915
  Transmission Date: 20120403
  Serious: Yes (Hospitalization)
  Sender: FDA-Public Use
  Company Number: US-BAYER-2011-032884

PATIENT
  Age: 28 Year
  Sex: Female
  Weight: 113.38 kg

DRUGS (7)
  1. ALBUTEROL [Concomitant]
     Dosage: 2 PUFF Q4H PRN
     Dates: start: 20080623
  2. MOTRIN [Concomitant]
     Dosage: UNK UNK, PRN
  3. TOPROL-XL [Concomitant]
     Dosage: 25 MG, UNK
  4. COUMADIN [Concomitant]
     Dosage: UNK
     Dates: end: 20090215
  5. METOPROLOL SUCCINATE [Concomitant]
     Indication: BLOOD PRESSURE ABNORMAL
     Dosage: 25 MG, UNK
     Dates: start: 20080101
  6. YAZ [Suspect]
     Indication: CONTRACEPTION
     Dosage: UNK
     Dates: start: 20031228, end: 20080410
  7. YASMIN [Suspect]
     Indication: CONTRACEPTION
     Dosage: UNK
     Dates: start: 20031228, end: 20080410

REACTIONS (4)
  - PAIN [None]
  - THROMBOSIS [None]
  - DEEP VEIN THROMBOSIS [None]
  - INJURY [None]
